FAERS Safety Report 6907634-0 (Version None)
Quarter: 2010Q3

REPORT INFORMATION
  Report Type: 
  Country: None (occurrence: None)
  Receive Date: 20100802
  Receipt Date: 20100728
  Transmission Date: 20110219
  Serious: Yes (Other)
  Sender: FDA-Public Use
  Company Number: 2010SP039762

PATIENT
  Age: 2 Month
  Sex: Female
  Weight: 4 kg

DRUGS (2)
  1. CERAZETTE (DESOGESTREL) [Suspect]
     Indication: DRUG EXPOSURE VIA BREAST MILK
     Dosage: TRMA
     Route: 063
     Dates: start: 20100619, end: 20100720
  2. EQUILID [Concomitant]

REACTIONS (4)
  - ABDOMINAL PAIN [None]
  - DIARRHOEA [None]
  - DRUG EXPOSURE VIA BREAST MILK [None]
  - HAEMATOCHEZIA [None]
